FAERS Safety Report 23043821 (Version 2)
Quarter: 2023Q4

REPORT INFORMATION
  Report Type: Spontaneous
  Country: GB (occurrence: GB)
  Receive Date: 20231009
  Receipt Date: 20231109
  Transmission Date: 20240109
  Serious: Yes (Other)
  Sender: FDA-Public Use
  Company Number: GB-002147023-NVSC2023GB197156

PATIENT
  Sex: Female

DRUGS (1)
  1. LUCENTIS [Suspect]
     Active Substance: RANIBIZUMAB
     Indication: Product used for unknown indication
     Dosage: UNKNOWN (AROUND NOVEMBER AND DECEMBER 2022)
     Route: 065
     Dates: start: 2022

REACTIONS (2)
  - Cataract [Unknown]
  - Visual impairment [Unknown]
